FAERS Safety Report 9736632 (Version 1)
Quarter: 2013Q4

REPORT INFORMATION
  Report Type: Spontaneous
  Country: US (occurrence: US)
  Receive Date: 20131206
  Receipt Date: 20131206
  Transmission Date: 20140711
  Serious: No
  Sender: FDA-Public Use
  Company Number: US-PFIZER INC-2013346626

PATIENT
  Age: 30 Year
  Sex: Female
  Weight: 89.34 kg

DRUGS (9)
  1. LYRICA [Suspect]
     Indication: PAIN
     Dosage: 100 MG, 3X/DAY
     Dates: start: 20130221
  2. KLONOPIN [Concomitant]
     Indication: ANXIETY
     Dosage: 0.5 MG, 1X/DAY ((1 TABLET 1-2 TAB PO QD PRN ANXIETY))
     Route: 048
  3. ACETAMINOPHEN W/OXYCODONE [Concomitant]
     Dosage: 325 MG-7.5 MG, (1 TABLET EVERY 6-8 HOURS)
     Route: 048
  4. NORTRIPTYLINE [Concomitant]
     Dosage: 50 MG, 1X/DAY (1 CAPSULE ONCE A DAY (AT BEDTIME))
     Dates: start: 20130620
  5. TOPAMAX [Concomitant]
     Dosage: 50 MG, 2X/DAY
     Dates: start: 20130620
  6. LEXAPRO [Concomitant]
     Dosage: 20 MG, 1X/DAY (1 TABLET ONCE A DAY)
  7. PERCOCET [Concomitant]
     Dosage: 325MG- 5MG, 1 TABLET EVERY 6-8 HOURS 30 TAB/MONTH
     Route: 048
     Dates: start: 20130723
  8. PERCOCET [Concomitant]
     Dosage: (7.5/325 1 TABS EVERY 6-8 HOURS, 30 TAB/MONTH
     Route: 048
     Dates: start: 20130816
  9. DICLOFENAC SODIUM [Concomitant]
     Dosage: 75 MG, 2X/DAY
     Dates: start: 20130801

REACTIONS (4)
  - Abdominal pain [Unknown]
  - Pain [Unknown]
  - Mood altered [Unknown]
  - Drug effect incomplete [Unknown]
